FAERS Safety Report 8731670 (Version 2)
Quarter: 2012Q4

REPORT INFORMATION
  Report Type: 
  Country: US (occurrence: US)
  Receive Date: 20120820
  Receipt Date: 20120829
  Transmission Date: 20130627
  Serious: Yes (Other)
  Sender: FDA-Public Use
  Company Number: US-PFIZER INC-2012198862

PATIENT
  Age: 21 Year
  Sex: Female
  Weight: 66.67 kg

DRUGS (8)
  1. RAPAMUNE [Suspect]
     Dosage: UNK
  2. MYCOPHENOLATE MOFETIL [Suspect]
     Indication: PROPHYLAXIS AGAINST TRANSPLANT REJECTION
     Dosage: 750 mg, 2x/day
     Route: 048
     Dates: start: 20110622, end: 20120126
  3. ATORVASTATIN CALCIUM [Concomitant]
     Dosage: UNK
     Dates: end: 20120126
  4. TACROLIMUS [Concomitant]
     Indication: TRANSPLANT
     Dosage: 5 mg, 2x/day
     Route: 048
  5. PREDNISONE [Concomitant]
     Indication: TRANSPLANT
     Dosage: 35 mg, 1x/day
     Route: 048
     Dates: start: 20120126
  6. LISINOPRIL [Concomitant]
     Dosage: UNK
     Dates: end: 20120126
  7. SULFAMETHOXAZOLE W/TRIMETHOPRIM [Concomitant]
     Dosage: UNK
     Dates: end: 20120126
  8. OMEPRAZOLE [Concomitant]
     Dosage: UNK
     Dates: end: 20120126

REACTIONS (1)
  - Abortion spontaneous [Unknown]
